FAERS Safety Report 20405136 (Version 1)
Quarter: 2022Q1

REPORT INFORMATION
  Report Type: Spontaneous
  Country: US (occurrence: None)
  Receive Date: 20220128
  Receipt Date: 20220128
  Transmission Date: 20220423
  Serious: Yes (Other)
  Sender: FDA-Public Use
  Company Number: None

PATIENT
  Age: 32 Month
  Sex: Male
  Weight: 15.3 kg

DRUGS (1)
  1. MONTELUKAST [Suspect]
     Active Substance: MONTELUKAST SODIUM
     Indication: Multiple allergies
     Dosage: OTHER QUANTITY : 1 CAPSULE(S);?
     Route: 048
     Dates: start: 20211220, end: 20220109

REACTIONS (6)
  - Sleep terror [None]
  - Irritability [None]
  - Aggression [None]
  - Physical assault [None]
  - Anger [None]
  - Mental disorder [None]

NARRATIVE: CASE EVENT DATE: 20211227
